FAERS Safety Report 4667229-9 (Version None)
Quarter: 2005Q2

REPORT INFORMATION
  Report Type: 
  Country: None (occurrence: None)
  Receive Date: 20050520
  Receipt Date: 20050114
  Transmission Date: 20051028
  Serious: Yes (Hospitalization, Other)
  Sender: FDA-Public Use
  Company Number: US-BRISTOL-MYERS SQUIBB COMPANY-12829594

PATIENT
  Age: 73 Year
  Sex: Male
  Weight: 70 kg

DRUGS (6)
  1. SINEMET [Suspect]
     Indication: PARKINSON'S DISEASE
     Route: 048
  2. ASPIRIN [Concomitant]
  3. ENTACAPONE [Concomitant]
  4. MIDODRINE HCL [Concomitant]
  5. QUETIAPINE FUMARATE [Concomitant]
  6. SENNOSIDE [Concomitant]

REACTIONS (1)
  - SHARED PSYCHOTIC DISORDER [None]
